FAERS Safety Report 7323950-5 (Version None)
Quarter: 2011Q1

REPORT INFORMATION
  Report Type: 
  Country: None (occurrence: None)
  Receive Date: 20110301
  Receipt Date: 20110223
  Transmission Date: 20110831
  Serious: Yes (Death)
  Sender: FDA-Public Use
  Company Number: B0701073A

PATIENT
  Sex: Male

DRUGS (3)
  1. REVOLADE [Suspect]
     Indication: THROMBOCYTOPENIA
     Route: 048
     Dates: start: 20110117, end: 20110127
  2. CHEMOTHERAPY [Concomitant]
     Indication: LUNG NEOPLASM MALIGNANT
     Route: 065
  3. PLATELETS [Concomitant]
     Indication: THROMBOCYTOPENIA
     Route: 065
     Dates: start: 20101231

REACTIONS (4)
  - HAEMORRHAGE [None]
  - COUGH [None]
  - PYREXIA [None]
  - PNEUMOCOCCAL INFECTION [None]
